FAERS Safety Report 4825385-3 (Version None)
Quarter: 2005Q4

REPORT INFORMATION
  Report Type: 
  Country: None (occurrence: None)
  Receive Date: 20051111
  Receipt Date: 20050810
  Transmission Date: 20060501
  Serious: Yes (Other)
  Sender: FDA-Public Use
  Company Number: US-MERCK-0508USA02037

PATIENT
  Age: 77 Year
  Sex: Male
  Weight: 91 kg

DRUGS (6)
  1. VYTORIN [Suspect]
     Indication: HYPERLIPIDAEMIA
     Route: 048
  2. VYTORIN [Suspect]
     Route: 048
     Dates: start: 20050701, end: 20050101
  3. COUMADIN [Concomitant]
     Route: 065
  4. [THERAPY UNSPECIFIED] [Concomitant]
     Route: 065
  5. ASPIRIN [Concomitant]
     Route: 048
  6. SOTALOL HYDROCHLORIDE [Concomitant]
     Route: 065

REACTIONS (4)
  - ABDOMINAL PAIN [None]
  - EPISTAXIS [None]
  - FAECES PALE [None]
  - INTERNATIONAL NORMALISED RATIO INCREASED [None]
